FAERS Safety Report 6370120-3 (Version None)
Quarter: 2009Q3

REPORT INFORMATION
  Report Type: 
  Country: None (occurrence: None)
  Receive Date: 20090923
  Receipt Date: 20070925
  Transmission Date: 20100115
  Serious: Yes (Other)
  Sender: FDA-Public Use
  Company Number: US-ASTRAZENECA-2006UW21988

PATIENT
  Age: 19105 Day
  Sex: Female

DRUGS (7)
  1. SEROQUEL [Suspect]
     Indication: BIPOLAR DISORDER
     Route: 048
     Dates: start: 20050822
  2. GABAPENTIN [Concomitant]
     Route: 048
     Dates: start: 20050525
  3. PREVACID [Concomitant]
     Dates: start: 20070325
  4. ATENOLOL [Concomitant]
     Dates: start: 20070325
  5. PRINIVIL [Concomitant]
     Dosage: STRENGTH-  10 MG, 40 MG  DOSE-  10-40 MG DAILY
     Route: 048
     Dates: start: 19960930
  6. PROCARDIA XL [Concomitant]
     Indication: HYPERTENSION
     Route: 048
     Dates: start: 19960930
  7. VICODIN [Concomitant]
     Dates: start: 20070325

REACTIONS (2)
  - DIABETES MELLITUS [None]
  - DIABETES MELLITUS INADEQUATE CONTROL [None]
